FAERS Safety Report 5328399-2 (Version None)
Quarter: 2007Q2

REPORT INFORMATION
  Report Type: 
  Country: None (occurrence: None)
  Receive Date: 20070515
  Receipt Date: 20070515
  Transmission Date: 20071010
  Serious: Yes (Death, Hospitalization)
  Sender: FDA-Public Use
  Company Number: None

PATIENT
  Sex: Male
  Weight: 68 kg

DRUGS (4)
  1. CYTARABINE [Suspect]
     Dosage: 680 MG
     Dates: start: 20070416, end: 20070420
  2. DEXAMETHASONE 0.5MG TAB [Suspect]
     Dosage: 18 MG
  3. ETOPOSIDE [Suspect]
     Dosage: 904 MG
     Dates: end: 20070420
  4. VINCRISTINE SULFATE [Suspect]
     Dosage: 2 MG
     Dates: end: 20070416

REACTIONS (13)
  - ABDOMINAL DISTENSION [None]
  - ABDOMINAL PAIN [None]
  - BACK PAIN [None]
  - CARDIAC ARREST [None]
  - CYANOSIS [None]
  - HYPOTENSION [None]
  - HYPOXIA [None]
  - INTERVERTEBRAL DISC PROTRUSION [None]
  - INTERVERTEBRAL DISCITIS [None]
  - LETHARGY [None]
  - METABOLIC ACIDOSIS [None]
  - NEUROPATHY [None]
  - NEUTROPHIL COUNT DECREASED [None]
